FAERS Safety Report 15192457 (Version 1)
Quarter: 2018Q3

REPORT INFORMATION
  Report Type: Spontaneous
  Country: AU (occurrence: AU)
  Receive Date: 20180725
  Receipt Date: 20180725
  Transmission Date: 20181010
  Serious: Yes (Hospitalization)
  Sender: FDA-Public Use
  Company Number: AU-EDENBRIDGE PHARMACEUTICALS, LLC-AU-2018EDE000233

PATIENT

DRUGS (4)
  1. PREDNISOLONE SODIUM PHOSPHATE. [Suspect]
     Active Substance: PREDNISOLONE SODIUM PHOSPHATE
     Indication: IMMUNOSUPPRESSION
     Dosage: UNK (DAYS 0 AND 4 AFTER TRANSPLANTATION)
  2. TACROLIMUS. [Suspect]
     Active Substance: TACROLIMUS
     Indication: IMMUNOSUPPRESSION
     Dosage: UNK (DAYS 0 AND 4 AFTER TRANSPLANTATION)
  3. MYCOPHENOLATE MOFETIL. [Suspect]
     Active Substance: MYCOPHENOLATE MOFETIL
     Indication: IMMUNOSUPPRESSION
     Dosage: UNK (DAYS 0 AND 4 AFTER TRANSPLANTATION)
  4. BASILIXIMAB [Suspect]
     Active Substance: BASILIXIMAB
     Indication: IMMUNOSUPPRESSION
     Dosage: UNK (DAYS 0 AND 4 AFTER TRANSPLANTATION)

REACTIONS (2)
  - Adenoma benign [Unknown]
  - Urinary tract infection [Unknown]
